FAERS Safety Report 22050470 (Version 1)
Quarter: 2023Q1

REPORT INFORMATION
  Report Type: Spontaneous
  Country: US (occurrence: None)
  Receive Date: 20230228
  Receipt Date: 20230228
  Transmission Date: 20230417
  Serious: Yes (Hospitalization)
  Sender: FDA-Public Use
  Company Number: None

PATIENT
  Age: 71 Year
  Sex: Male
  Weight: 109.77 kg

DRUGS (26)
  1. IMATINIB [Suspect]
     Active Substance: IMATINIB
     Indication: Chronic myeloid leukaemia
     Dosage: FREQUENCY : DAILY;?
     Route: 048
     Dates: start: 202207
  2. ADVAIR DISKUS [Concomitant]
     Active Substance: FLUTICASONE PROPIONATE\SALMETEROL XINAFOATE
  3. ALLOPURINOL [Concomitant]
     Active Substance: ALLOPURINOL
  4. AMIODARONE [Concomitant]
     Active Substance: AMIODARONE
  5. ASPIRIN [Concomitant]
     Active Substance: ASPIRIN
  6. BENAZEPRIL [Concomitant]
     Active Substance: BENAZEPRIL HYDROCHLORIDE
  7. DOXYCYCLINE [Concomitant]
     Active Substance: DOXYCYCLINE
  8. FLOMAX [Concomitant]
     Active Substance: TAMSULOSIN HYDROCHLORIDE
  9. GLEEVEC [Concomitant]
     Active Substance: IMATINIB MESYLATE
  10. HYDREA [Concomitant]
     Active Substance: HYDROXYUREA
  11. IRON [Concomitant]
     Active Substance: IRON
  12. KLOR-CON M20 [Concomitant]
     Active Substance: POTASSIUM CHLORIDE
  13. LIPITOR [Concomitant]
     Active Substance: ATORVASTATIN CALCIUM
  14. METOPROLOL [Concomitant]
     Active Substance: METOPROLOL
  15. VITAMINS [Concomitant]
     Active Substance: VITAMINS
  16. OLMESARTAN [Concomitant]
     Active Substance: OLMESARTAN
  17. OMEGA3 [Concomitant]
  18. POTASSIUM CHLORIDE [Concomitant]
     Active Substance: POTASSIUM CHLORIDE
  19. SENOKOT-S [Concomitant]
     Active Substance: DOCUSATE SODIUM\SENNOSIDES
  20. SOTALOL [Concomitant]
     Active Substance: SOTALOL
  21. SULFACETAMIDE [Concomitant]
     Active Substance: SULFACETAMIDE
  22. TORSEMIDE [Concomitant]
     Active Substance: TORSEMIDE
  23. TRETINOIN [Concomitant]
     Active Substance: TRETINOIN
  24. VITAMIN C [Concomitant]
     Active Substance: ASCORBIC ACID
  25. VITAMIN D3 [Concomitant]
     Active Substance: CHOLECALCIFEROL
  26. ZINC [Concomitant]
     Active Substance: ZINC

REACTIONS (1)
  - Hospitalisation [None]
